FAERS Safety Report 11878457 (Version 1)
Quarter: 2015Q4

REPORT INFORMATION
  Report Type: Spontaneous
  Country: US (occurrence: None)
  Receive Date: 20151229
  Receipt Date: 20151229
  Transmission Date: 20160305
  Serious: Yes (Hospitalization, Disabling)
  Sender: FDA-Public Use
  Company Number: None

PATIENT
  Age: 37 Year
  Sex: Male
  Weight: 83.92 kg

DRUGS (4)
  1. CIPRO [Suspect]
     Active Substance: CIPROFLOXACIN HYDROCHLORIDE
     Indication: URINARY TRACT INFECTION
     Dates: start: 20071214, end: 20071216
  2. DEXALANT [Concomitant]
  3. DULERA [Concomitant]
     Active Substance: FORMOTEROL FUMARATE DIHYDRATE\MOMETASONE FUROATE
  4. ALPRAZOLAM. [Concomitant]
     Active Substance: ALPRAZOLAM

REACTIONS (11)
  - Cough [None]
  - Weight decreased [None]
  - Hyperaesthesia [None]
  - Oropharyngeal discomfort [None]
  - Nausea [None]
  - Ageusia [None]
  - Hyperactive pharyngeal reflex [None]
  - Vomiting [None]
  - Impaired work ability [None]
  - Decreased appetite [None]
  - Skin burning sensation [None]

NARRATIVE: CASE EVENT DATE: 20071218
